FAERS Safety Report 9880796 (Version 2)
Quarter: 2014Q1

REPORT INFORMATION
  Report Type: Spontaneous
  Country: US (occurrence: US)
  Receive Date: 20140207
  Receipt Date: 20140228
  Transmission Date: 20141002
  Serious: No
  Sender: FDA-Public Use
  Company Number: US-PFIZER INC-2014032481

PATIENT
  Age: 79 Year
  Sex: Female
  Weight: 88.4 kg

DRUGS (2)
  1. ARTHROTEC [Suspect]
     Indication: ARTHRITIS
     Dosage: 50 MG, UNK
     Dates: start: 2013
  2. ARTHROTEC [Suspect]
     Indication: ANALGESIC THERAPY

REACTIONS (1)
  - Drug ineffective [Unknown]
